FAERS Safety Report 4855803-6 (Version None)
Quarter: 2005Q4

REPORT INFORMATION
  Report Type: 
  Country: None (occurrence: None)
  Receive Date: 20051215
  Receipt Date: 20051215
  Transmission Date: 20060501
  Serious: Yes (Life-Threatening)
  Sender: FDA-Public Use
  Company Number: None

PATIENT
  Age: 12 Year
  Sex: Male
  Weight: 45.6 kg

DRUGS (4)
  1. AZATHIOPRINE [Suspect]
     Indication: CROHN'S DISEASE
     Dosage: 125 MG DAILY PO
     Route: 048
     Dates: start: 20001229, end: 20051128
  2. INFLIXIMAB                                     CENTOCOR [Suspect]
     Indication: CROHN'S DISEASE
     Dosage: 300 MG EVERY 8 WEEKS IV DRIP
     Route: 041
     Dates: start: 20001229, end: 20051003
  3. CIPROFLOXACIN [Concomitant]
  4. PENTASA [Concomitant]

REACTIONS (9)
  - ALANINE AMINOTRANSFERASE INCREASED [None]
  - ASPARTATE AMINOTRANSFERASE INCREASED [None]
  - HEPATOSPLENOMEGALY [None]
  - LIVER TENDERNESS [None]
  - PERIANAL ABSCESS [None]
  - PURPURA [None]
  - RASH ERYTHEMATOUS [None]
  - T-CELL LYMPHOMA [None]
  - THROMBOCYTOPENIA [None]
